FAERS Safety Report 24815312 (Version 1)
Quarter: 2025Q1

REPORT INFORMATION
  Report Type: Spontaneous
  Country: US (occurrence: None)
  Receive Date: 20250107
  Receipt Date: 20250107
  Transmission Date: 20250409
  Serious: Yes (Hospitalization)
  Sender: FDA-CTU
  Company Number: None

PATIENT
  Age: 27 Year
  Sex: Male

DRUGS (5)
  1. PULMOZYME [Suspect]
     Active Substance: DORNASE ALFA
     Indication: Bacterial disease carrier
     Dosage: FREQUENCY : DAILY; INTO THE LUNGS VIA NEBULIZER ONCE DAILY?
     Route: 045
     Dates: start: 2024
  2. ESCITALOPRAM [Concomitant]
     Active Substance: ESCITALOPRAM OXALATE
  3. NOVOLOG  INJ PENFILL [Concomitant]
  4. OXYCOD/APAP TAB 5-325MG [Concomitant]
  5. PULMOZVME  SOL 1MG/ML [Concomitant]

REACTIONS (9)
  - Cystic fibrosis respiratory infection suppression [None]
  - Dyspnoea [None]
  - Nasal inflammation [None]
  - Nasal congestion [None]
  - Productive cough [None]
  - Wheezing [None]
  - Sleep disorder [None]
  - Loss of personal independence in daily activities [None]
  - Therapy interrupted [None]

NARRATIVE: CASE EVENT DATE: 20241117
